FAERS Safety Report 17720159 (Version 1)
Quarter: 2020Q2

REPORT INFORMATION
  Report Type: Spontaneous
  Country: US (occurrence: US)
  Receive Date: 20200428
  Receipt Date: 20200428
  Transmission Date: 20200714
  Serious: No
  Sender: FDA-Public Use
  Company Number: US-009507513-2004USA007338

PATIENT
  Age: 75 Year
  Sex: Male

DRUGS (2)
  1. SINEMET CR [Suspect]
     Active Substance: CARBIDOPA\LEVODOPA
     Route: 048
  2. MIDODRINE HYDROCHLORIDE. [Concomitant]
     Active Substance: MIDODRINE HYDROCHLORIDE

REACTIONS (2)
  - Blood pressure increased [Unknown]
  - Tachycardia [Recovered/Resolved]

NARRATIVE: CASE EVENT DATE: 20200311
